FAERS Safety Report 8963935 (Version 1)
Quarter: 2012Q4

REPORT INFORMATION
  Report Type: 
  Country: US (occurrence: US)
  Receive Date: 20121213
  Receipt Date: 20121213
  Transmission Date: 20130627
  Serious: No
  Sender: FDA-Public Use
  Company Number: US-PFIZER INC-2012314723

PATIENT
  Sex: Female

DRUGS (1)
  1. CELEBREX [Suspect]
     Indication: JOINT DISORDER
     Dosage: UNK
     Dates: start: 2012

REACTIONS (2)
  - Abdominal pain [Unknown]
  - Diarrhoea [Unknown]
